FAERS Safety Report 23015874 (Version 4)
Quarter: 2023Q4

REPORT INFORMATION
  Report Type: Report from Study
  Country: AT (occurrence: AT)
  Receive Date: 20231002
  Receipt Date: 20231123
  Transmission Date: 20240109
  Serious: Yes (Hospitalization)
  Sender: FDA-Public Use
  Company Number: AT-GENMAB-2023-01771

PATIENT
  Age: 64 Year
  Sex: Female

DRUGS (16)
  1. EPCORITAMAB [Suspect]
     Active Substance: EPCORITAMAB
     Indication: Follicular lymphoma
     Dosage: 48 MG C1 (STEP-UP), CYCLES 2 - 3 (WEEKLY) AND C4-12 (EVERY 4 WEEKS) PER PROTOCOL, EVERY 4 WEEKS
     Route: 058
     Dates: start: 20230504, end: 20230829
  2. EPCORITAMAB [Suspect]
     Active Substance: EPCORITAMAB
     Dosage: 48 MG C1 (STEP-UP), CYCLES 2 - 3 (WEEKLY) AND C4-12 (EVERY 4 WEEKS) PER PROTOCOL, EVERY 4 WEEKS
     Route: 058
     Dates: start: 20231006
  3. LENALIDOMIDE [Suspect]
     Active Substance: LENALIDOMIDE
     Indication: Follicular lymphoma
     Dosage: 20 MG DAYS 1 TO 21 OF A 28-DAY CYCLE, EVERY 1 DAYS
     Route: 048
     Dates: start: 20230504, end: 20230907
  4. LENALIDOMIDE [Suspect]
     Active Substance: LENALIDOMIDE
     Dosage: 10 MG DAYS 1 TO 21 OF A 28-DAY CYCLE, EVERY 1 DAYS
     Route: 048
     Dates: start: 20231006
  5. RITUXIMAB [Suspect]
     Active Substance: RITUXIMAB
     Indication: Follicular lymphoma
     Dosage: 620 MG DAY 1 OF EACH CYCLE, (C1-C5), EVERY 4 WEEKS
     Route: 042
     Dates: start: 20230504, end: 20230829
  6. ASPIRIN [Concomitant]
     Active Substance: ASPIRIN
     Indication: Thrombosis prophylaxis
     Dosage: 100 MG, AS NECESSARY
     Dates: start: 20230504
  7. ZOFRAN [Concomitant]
     Active Substance: ONDANSETRON HYDROCHLORIDE
     Indication: Prophylaxis of nausea and vomiting
     Dosage: 8 MG, AS NECESSARY
     Dates: start: 20230504
  8. PASPERTIN [LAUROMACROGOL 400;METOCLOPRAMIDE] [Concomitant]
     Indication: Prophylaxis of nausea and vomiting
     Dosage: 10 MG, AS NECESSARY
     Dates: start: 20230504
  9. POLYETHYLENE GLYCOL 3350\POTASSIUM CHLORIDE\SODIUM BICARBONATE\SODIUM [Concomitant]
     Active Substance: POLYETHYLENE GLYCOL 3350\POTASSIUM CHLORIDE\SODIUM BICARBONATE\SODIUM CHLORIDE
     Indication: Constipation prophylaxis
     Dosage: 1 BAG, 3/DAYS
     Dates: start: 20230504
  10. ACETAMINOPHEN [Concomitant]
     Active Substance: ACETAMINOPHEN
     Indication: Pain prophylaxis
     Dosage: 500 MG, 4/DAYS
     Dates: start: 20230504
  11. GLANDOMED [Concomitant]
     Indication: Prophylaxis
     Dosage: AS NECESSARY
     Dates: start: 20230504
  12. ACETAMINOPHEN [Concomitant]
     Active Substance: ACETAMINOPHEN
     Indication: Premedication
     Dosage: 1000 MG, EVERY 1 WEEKS
     Dates: start: 20230504
  13. DIPHENHYDRAMINE HYDROCHLORIDE [Concomitant]
     Active Substance: DIPHENHYDRAMINE HYDROCHLORIDE
     Indication: Premedication
     Dosage: 50 MG, EVERY 1 WEEKS
     Dates: start: 20230504
  14. MAGNESIUM CARBONATE\MAGNESIUM OXIDE [Concomitant]
     Active Substance: MAGNESIUM CARBONATE\MAGNESIUM OXIDE
     Indication: Muscle spasms
     Dosage: 1 BAG, AS NECESSARY
     Dates: start: 20230519
  15. FERRETAB [ASCORBIC ACID;FERROUS FUMARATE] [Concomitant]
     Indication: Iron deficiency
     Dosage: 1 DOSAGE FORM, EVERY 1 DAYS
     Dates: start: 20230801
  16. LOPERAMIDE HYDROCHLORIDE [Concomitant]
     Active Substance: LOPERAMIDE HYDROCHLORIDE
     Indication: Diarrhoea
     Dosage: 2 MG, AS NECESSARY
     Dates: start: 20230720

REACTIONS (1)
  - Cytomegalovirus infection [Recovered/Resolved]

NARRATIVE: CASE EVENT DATE: 20230921
